FAERS Safety Report 4575480-1 (Version None)
Quarter: 2005Q1

REPORT INFORMATION
  Report Type: 
  Country: None (occurrence: None)
  Receive Date: 20050128
  Receipt Date: 20050128
  Transmission Date: 20050727
  Serious: Yes (Other)
  Sender: FDA-Public Use
  Company Number: None

PATIENT
  Age: 81 Year
  Sex: Female
  Weight: 64.4108 kg

DRUGS (1)
  1. PRINZIDE [Suspect]
     Indication: HYPERTENSION
     Dosage: 10-12.5 MG  1 PO DAILY    LIFETIME

REACTIONS (2)
  - CONFUSIONAL STATE [None]
  - VERTIGO [None]
